FAERS Safety Report 11720593 (Version 2)
Quarter: 2016Q1

REPORT INFORMATION
  Report Type: Spontaneous
  Country: DE (occurrence: DE)
  Receive Date: 20151110
  Receipt Date: 20160129
  Transmission Date: 20160525
  Serious: Yes (Hospitalization)
  Sender: FDA-Public Use
  Company Number: DE-SA-2015SA175997

PATIENT
  Age: 35 Year
  Sex: Female
  Weight: 66 kg

DRUGS (5)
  1. PARACETAMOL [Concomitant]
     Active Substance: ACETAMINOPHEN
     Dates: start: 1999
  2. IBUFLAM [Concomitant]
     Active Substance: IBUPROFEN
     Indication: PAIN
     Dosage: 600
     Dates: start: 1999
  3. RESTEX [Concomitant]
     Active Substance: BENSERAZIDE
     Dates: start: 1999
  4. AUBAGIO [Suspect]
     Active Substance: TERIFLUNOMIDE
     Indication: RELAPSING-REMITTING MULTIPLE SCLEROSIS
     Route: 048
     Dates: start: 20131118, end: 201510
  5. IBUFLAM [Concomitant]
     Active Substance: IBUPROFEN
     Indication: NASOPHARYNGITIS
     Dosage: 800
     Dates: start: 1999

REACTIONS (11)
  - Salpingitis [Unknown]
  - Migraine [Recovered/Resolved]
  - Abdominal pain [Recovered/Resolved]
  - Flank pain [Not Recovered/Not Resolved]
  - Tubulointerstitial nephritis [Recovered/Resolved]
  - Osteoarthritis [Unknown]
  - Back pain [Recovered/Resolved]
  - Multiple sclerosis relapse [Recovered/Resolved]
  - Abdominal pain lower [Not Recovered/Not Resolved]
  - Inflammation [Unknown]
  - Groin pain [Not Recovered/Not Resolved]

NARRATIVE: CASE EVENT DATE: 20150926
